FAERS Safety Report 4885894-8 (Version None)
Quarter: 2006Q1

REPORT INFORMATION
  Report Type: 
  Country: None (occurrence: None)
  Receive Date: 20060117
  Receipt Date: 20060106
  Transmission Date: 20060701
  Serious: Yes (Hospitalization)
  Sender: FDA-Public Use
  Company Number: 2006-01-0446

PATIENT
  Age: 52 Year
  Sex: Female

DRUGS (11)
  1. PEG-INTRON [Suspect]
     Indication: HEPATITIS C
     Dosage: 100 MCG QW SUBCUTANEOUS
     Route: 058
     Dates: start: 20051121, end: 20051126
  2. REBETOL [Suspect]
     Indication: HEPATITIS C
     Dosage: 800-600 MG ORAL; 800 MG ORAL; 600 MG ORAL
     Route: 048
     Dates: start: 20051121, end: 20050101
  3. REBETOL [Suspect]
     Indication: HEPATITIS C
     Dosage: 800-600 MG ORAL; 800 MG ORAL; 600 MG ORAL
     Route: 048
     Dates: start: 20050101, end: 20051221
  4. REBETOL [Suspect]
     Indication: HEPATITIS C
     Dosage: 800-600 MG ORAL; 800 MG ORAL; 600 MG ORAL
     Route: 048
     Dates: start: 20051121, end: 20051221
  5. VOLTAREN [Concomitant]
  6. OMEPRAZOLE [Concomitant]
  7. ZOPICLONE [Concomitant]
  8. LOPRESSOR [Concomitant]
  9. CYANOCOBALAMIN [Concomitant]
  10. SELBEX [Concomitant]
  11. HOKUNALIN [Concomitant]

REACTIONS (5)
  - CONFUSIONAL STATE [None]
  - DELUSION [None]
  - HAEMOGLOBIN DECREASED [None]
  - HALLUCINATION [None]
  - LOWER LIMB FRACTURE [None]
